FAERS Safety Report 6918137-1 (Version None)
Quarter: 2010Q3

REPORT INFORMATION
  Report Type: 
  Country: None (occurrence: None)
  Receive Date: 20100806
  Receipt Date: 20100728
  Transmission Date: 20110219
  Serious: Yes (Life-Threatening, Hospitalization)
  Sender: FDA-Public Use
  Company Number: AX239-10-0398

PATIENT
  Age: 63 Year
  Sex: Female

DRUGS (2)
  1. ABRAXANE [Suspect]
     Indication: BREAST CANCER METASTATIC
     Dosage: 100 MG/M2
     Dates: start: 20100319
  2. LAPATINIB [Suspect]
     Indication: BREAST CANCER METASTATIC
     Dosage: 1000 MG, ORAL
     Route: 048
     Dates: start: 20100319

REACTIONS (4)
  - APPARENT LIFE THREATENING EVENT [None]
  - DEHYDRATION [None]
  - DYSPNOEA [None]
  - RENAL FAILURE ACUTE [None]
